FAERS Safety Report 14733095 (Version 4)
Quarter: 2018Q2

REPORT INFORMATION
  Report Type: Report from Study
  Country: DE (occurrence: DE)
  Receive Date: 20180409
  Receipt Date: 20180502
  Transmission Date: 20180711
  Serious: Yes (Hospitalization)
  Sender: FDA-Public Use
  Company Number: DE-ROCHE-2098623

PATIENT
  Age: 29 Year
  Sex: Male
  Weight: 71 kg

DRUGS (22)
  1. PREDNISOLON [Concomitant]
     Active Substance: PREDNISOLONE
     Route: 048
     Dates: start: 20180403
  2. VEMURAFENIB. [Suspect]
     Active Substance: VEMURAFENIB
     Indication: MALIGNANT MELANOMA
     Dosage: DATE OF MOST RECENT DOSE OF VEMURAFENIB PRIOR TO AE ONSET 15 MAR 2018: 4 DF?THERAPY INTERRUPTED ON 2
     Route: 048
     Dates: start: 20170703
  3. ARCOXIA [Concomitant]
     Active Substance: ETORICOXIB
     Indication: ARTHRALGIA
     Route: 048
     Dates: start: 20170713
  4. HYLO [Concomitant]
     Indication: DRY EYE
     Route: 061
     Dates: start: 20180102
  5. ELIDEL [Concomitant]
     Active Substance: PIMECROLIMUS
     Route: 061
     Dates: start: 20170717
  6. ZOMETA [Concomitant]
     Active Substance: ZOLEDRONIC ACID
     Indication: PROPHYLAXIS
     Route: 042
     Dates: start: 20170724
  7. L-THYROXIN [Concomitant]
     Active Substance: LEVOTHYROXINE SODIUM
     Indication: HYPOTHYROIDISM
     Route: 048
     Dates: start: 20171122
  8. PREDNISOLON [Concomitant]
     Active Substance: PREDNISOLONE
     Indication: VERTIGO
     Route: 048
     Dates: start: 20180207
  9. RANITIDIN [Concomitant]
     Active Substance: RANITIDINE HYDROCHLORIDE
     Route: 048
     Dates: start: 20180203
  10. ATEZOLIZUMAB. [Suspect]
     Active Substance: ATEZOLIZUMAB
     Indication: MALIGNANT MELANOMA
     Dosage: DATE OF MOST RECENT DOSE OF ATEZOLIZUMAB PRIOR TO AE ONSET 12 MAR 2018
     Route: 042
     Dates: start: 20170731
  11. COBIMETINIB. [Suspect]
     Active Substance: COBIMETINIB
     Indication: MALIGNANT MELANOMA
     Dosage: DATE OF MOST RECENT DOSE OF COBIMETINIB PRIOR TO AE ONSET 15/MAR/2018?THERAPY INTERRUPTED ON 26/MAR/
     Route: 048
     Dates: start: 20170703
  12. IBUPROFEN. [Concomitant]
     Active Substance: IBUPROFEN
     Indication: MYALGIA
     Route: 065
     Dates: start: 20180204
  13. DULOXETINA [Concomitant]
     Active Substance: DULOXETINE
     Indication: ANXIETY
     Route: 048
     Dates: start: 20170703
  14. MCP [Concomitant]
     Active Substance: METOCLOPRAMIDE HYDROCHLORIDE
     Indication: NAUSEA
     Route: 048
     Dates: start: 20170717
  15. BETAGALEN [Concomitant]
     Indication: RASH GENERALISED
     Route: 061
     Dates: start: 20170715
  16. JELLIN [Concomitant]
     Route: 061
     Dates: start: 20170717
  17. VOLON A (TRIAMCINOLONE ACETONIDE) [Concomitant]
     Route: 065
     Dates: start: 20171121
  18. PREDNISOLON [Concomitant]
     Active Substance: PREDNISOLONE
     Route: 048
     Dates: start: 20180303
  19. MEDIKINET [Concomitant]
     Active Substance: METHYLPHENIDATE
     Indication: ATTENTION DEFICIT/HYPERACTIVITY DISORDER
     Route: 048
     Dates: start: 20170115
  20. FENISTIL HYDROCORT [Concomitant]
     Indication: RASH GENERALISED
     Route: 061
     Dates: start: 20170727
  21. DUAC [Concomitant]
     Active Substance: BENZOYL PEROXIDE\CLINDAMYCIN PHOSPHATE
     Route: 061
     Dates: start: 20171023
  22. PREDNISOLON [Concomitant]
     Active Substance: PREDNISOLONE
     Indication: FATIGUE
     Route: 048
     Dates: start: 20180207

REACTIONS (1)
  - Viral infection [Recovered/Resolved]

NARRATIVE: CASE EVENT DATE: 20180315
